FAERS Safety Report 24876717 (Version 1)
Quarter: 2025Q1

REPORT INFORMATION
  Report Type: Spontaneous
  Country: DE (occurrence: DE)
  Receive Date: 20250123
  Receipt Date: 20250123
  Transmission Date: 20250409
  Serious: Yes (Hospitalization, Other)
  Sender: TEVA
  Company Number: None

PATIENT
  Age: 63 Year
  Sex: Female
  Weight: 85 kg

DRUGS (1)
  1. ENALAPRIL [Suspect]
     Active Substance: ENALAPRIL
     Indication: Hypertension
     Dosage: 1-0-0
     Route: 048

REACTIONS (8)
  - Angioedema [Recovered/Resolved with Sequelae]
  - Dyspnoea [Unknown]
  - Oxygen saturation decreased [Unknown]
  - Swollen tongue [Recovered/Resolved with Sequelae]
  - Hypoxia [Unknown]
  - Dysarthria [Recovered/Resolved with Sequelae]
  - Cardiovascular disorder [Unknown]
  - Heart rate decreased [Unknown]

NARRATIVE: CASE EVENT DATE: 20240701
